FAERS Safety Report 24719588 (Version 1)
Quarter: 2024Q4

REPORT INFORMATION
  Report Type: Spontaneous
  Country: US (occurrence: US)
  Receive Date: 20241211
  Receipt Date: 20241211
  Transmission Date: 20250115
  Serious: No
  Sender: SANDOZ
  Company Number: US-SANDOZ-SDZ2024US100147

PATIENT
  Sex: Female

DRUGS (1)
  1. HYRIMOZ [Suspect]
     Active Substance: ADALIMUMAB-ADAZ
     Indication: Rheumatoid arthritis
     Dosage: 40 MG, ONCE EVERY TWO WEEKS
     Route: 058

REACTIONS (3)
  - Musculoskeletal discomfort [Unknown]
  - Limb discomfort [Unknown]
  - Product dose omission issue [Unknown]
